FAERS Safety Report 16590914 (Version 1)
Quarter: 2019Q3

REPORT INFORMATION
  Report Type: Spontaneous
  Country: US (occurrence: US)
  Receive Date: 20190604
  Receipt Date: 20190604
  Transmission Date: 20191004
  Serious: Yes (Hospitalization)
  Sender: FDA-Public Use
  Company Number: None

PATIENT
  Age: 48 Year
  Sex: Female

DRUGS (3)
  1. CLONAZEPAM. [Concomitant]
     Active Substance: CLONAZEPAM
  2. TYKERB [Suspect]
     Active Substance: LAPATINIB DITOSYLATE
     Indication: BREAST CANCER
     Dosage: ?          OTHER FREQUENCY:DAILY X 5;  DAILY FOR 21 DAYS ORAL??STAR: 14-JUN-2019??      ?
     Route: 048
  3. QUETIAPINE. [Concomitant]
     Active Substance: QUETIAPINE

REACTIONS (2)
  - Diarrhoea [None]
  - Cellulitis [None]

NARRATIVE: CASE EVENT DATE: 20190526
